FAERS Safety Report 8190354 (Version 3)
Quarter: 2013Q1

REPORT INFORMATION
  Report Type: Spontaneous
  Country: US (occurrence: US)
  Receive Date: 20111019
  Receipt Date: 20130214
  Transmission Date: 20140127
  Serious: Yes (Other)
  Sender: FDA-Public Use
  Company Number: US-ASTRAZENECA-2010SE08036

PATIENT
  Age: 62 Year
  Sex: Female

DRUGS (3)
  1. NEXIUM [Suspect]
     Route: 048
  2. TOPROL XL [Suspect]
     Route: 048
  3. CRESTOR [Suspect]
     Route: 048

REACTIONS (10)
  - Wrist fracture [Unknown]
  - Joint injury [Unknown]
  - Fall [Unknown]
  - Back injury [Unknown]
  - Neck injury [Unknown]
  - Back pain [Unknown]
  - Neck pain [Unknown]
  - Toothache [Unknown]
  - Influenza [Unknown]
  - Respiratory disorder [Unknown]
